FAERS Safety Report 8927988 (Version 1)
Quarter: 2012Q4

REPORT INFORMATION
  Report Type: Spontaneous
  Country: US (occurrence: None)
  Receive Date: 20121120
  Receipt Date: 20121120
  Transmission Date: 20130627
  Serious: Yes (Disabling, Other)
  Sender: FDA-Public Use
  Company Number: DSA_60869_2012

PATIENT
  Age: 79 Year
  Sex: Female
  Weight: 52.16 kg

DRUGS (4)
  1. RENOVA [Suspect]
     Indication: SKIN WRINKLING
     Dosage: (1 DF QD, applied to face Topical)
     Route: 061
     Dates: start: 2009
  2. SYNTHROID [Concomitant]
  3. DYAZIDE [Concomitant]
  4. AMLODIPINE [Concomitant]

REACTIONS (3)
  - Borderline glaucoma [None]
  - Cataract [None]
  - Macular fibrosis [None]
